FAERS Safety Report 19928113 (Version 1)
Quarter: 2021Q4

REPORT INFORMATION
  Report Type: Spontaneous
  Country: US (occurrence: US)
  Receive Date: 20211006
  Receipt Date: 20211006
  Transmission Date: 20220303
  Serious: Yes (Life-Threatening)
  Sender: FDA-Public Use
  Company Number: None

PATIENT
  Age: 8 Year
  Sex: Female
  Weight: 88.5 kg

DRUGS (12)
  1. BARICITINIB [Suspect]
     Active Substance: BARICITINIB
     Indication: COVID-19
     Route: 048
     Dates: start: 20210926, end: 20211005
  2. BARICITINIB [Suspect]
     Active Substance: BARICITINIB
     Indication: Multisystem inflammatory syndrome in children
  3. albuterol nebs [Concomitant]
     Dates: start: 20210926
  4. ceftazidime inj [Concomitant]
     Dates: start: 20211004
  5. ENOXAPARIN SODIUM [Concomitant]
     Active Substance: ENOXAPARIN SODIUM
     Dates: start: 20210926
  6. CULTURELLE [Concomitant]
     Active Substance: LACTOBACILLUS RHAMNOSUS
     Dates: start: 20210926
  7. Micafungin inj [Concomitant]
     Dates: start: 20211001
  8. REMDESIVIR [Concomitant]
     Active Substance: REMDESIVIR
     Dates: start: 20210926
  9. SENNA LIQUID [Concomitant]
     Active Substance: SENNOSIDES
     Dates: start: 20210926
  10. dexmedetomidine continuous [Concomitant]
     Dates: start: 20210926
  11. midazolam continuous [Concomitant]
     Dates: start: 20210927
  12. morphine continuous [Concomitant]
     Dates: start: 20210927

REACTIONS (3)
  - Pneumatosis intestinalis [None]
  - Large intestine perforation [None]
  - Fibrin D dimer increased [None]

NARRATIVE: CASE EVENT DATE: 20211005
